FAERS Safety Report 14239429 (Version 1)
Quarter: 2017Q4

REPORT INFORMATION
  Report Type: Spontaneous
  Country: US (occurrence: US)
  Receive Date: 20171127
  Receipt Date: 20171127
  Transmission Date: 20180321
  Serious: Yes (Life-Threatening, Disabling, Other)
  Sender: FDA-Public Use
  Company Number: None

PATIENT
  Sex: Female
  Weight: 65.25 kg

DRUGS (6)
  1. DIPHENOXYLATE-ATHOP 2.5-1.025 [Suspect]
     Active Substance: ATROPINE\DIPHENOXYLATE HYDROCHLORIDE
     Indication: DIARRHOEA
     Route: 048
     Dates: start: 20170808, end: 20170916
  2. LIDOCAINE-PRILOCAINE [Concomitant]
     Active Substance: LIDOCAINE\PRILOCAINE
  3. RANITIDINE. [Concomitant]
     Active Substance: RANITIDINE
  4. LORAZEPAM. [Concomitant]
     Active Substance: LORAZEPAM
  5. SUCRALFATE. [Concomitant]
     Active Substance: SUCRALFATE
  6. CREON [Concomitant]
     Active Substance: PANCRELIPASE AMYLASE\PANCRELIPASE LIPASE\PANCRELIPASE PROTEASE

REACTIONS (5)
  - Product use issue [None]
  - Pneumatosis intestinalis [None]
  - Dehydration [None]
  - Tumour marker increased [None]
  - Cystitis [None]

NARRATIVE: CASE EVENT DATE: 20170902
